FAERS Safety Report 9512407 (Version 2)
Quarter: 2015Q2

REPORT INFORMATION
  Report Type: Spontaneous
  Country: ES (occurrence: ES)
  Receive Date: 20130910
  Receipt Date: 20150507
  Transmission Date: 20150821
  Serious: Yes (Other)
  Sender: FDA-Public Use
  Company Number: PHHY2013ES097312

PATIENT
  Age: 48 Year
  Sex: Female

DRUGS (1)
  1. BUPROPION [Suspect]
     Active Substance: BUPROPION
     Indication: DEPRESSION
     Dosage: 150 MG, QD
     Route: 065
     Dates: start: 20120309, end: 20120427

REACTIONS (3)
  - Cough [Recovered/Resolved]
  - Myalgia [Recovered/Resolved]
  - Eosinophilia [Recovering/Resolving]
